FAERS Safety Report 25022134 (Version 1)
Quarter: 2025Q1

REPORT INFORMATION
  Report Type: Spontaneous
  Country: US (occurrence: US)
  Receive Date: 20250228
  Receipt Date: 20250228
  Transmission Date: 20250409
  Serious: Yes (Other)
  Sender: TEVA
  Company Number: US-TEVA-VS-3301127

PATIENT
  Age: 82 Year
  Sex: Male

DRUGS (2)
  1. HYDROXYUREA [Suspect]
     Active Substance: HYDROXYUREA
     Indication: Product used for unknown indication
     Route: 065
  2. JAKAFI [Suspect]
     Active Substance: RUXOLITINIB
     Indication: Neoplasm malignant
     Route: 048
     Dates: start: 202501, end: 202501

REACTIONS (6)
  - Confusional state [Recovering/Resolving]
  - Communication disorder [Recovering/Resolving]
  - Off label use [Unknown]
  - Malaise [Recovering/Resolving]
  - Memory impairment [Recovering/Resolving]
  - Decreased appetite [Recovering/Resolving]

NARRATIVE: CASE EVENT DATE: 20250101
